FAERS Safety Report 7398873-6 (Version None)
Quarter: 2011Q2

REPORT INFORMATION
  Report Type: 
  Country: None (occurrence: None)
  Receive Date: 20110407
  Receipt Date: 20110330
  Transmission Date: 20111010
  Serious: Yes (Hospitalization)
  Sender: FDA-Public Use
  Company Number: US-ASTELLAS-2011US001307

PATIENT
  Sex: Female

DRUGS (18)
  1. LYRICA [Concomitant]
     Indication: NEURALGIA
     Dosage: 75 MG, UID/QD
     Route: 048
     Dates: start: 20090101
  2. FENTANYL [Concomitant]
     Indication: PAIN
     Dosage: 75 UG, 1 PATCH EVERY 72 HOURS
     Route: 062
     Dates: start: 20090101
  3. ATIVAN [Concomitant]
     Indication: NAUSEA
     Dosage: 0.5 MG, EVERY 4 HOURS PRN
     Route: 065
     Dates: start: 20110302
  4. ATIVAN [Concomitant]
     Indication: VOMITING
  5. PENICILLIN G POTASSIUM [Concomitant]
     Indication: IMMUNE SYSTEM DISORDER
     Dosage: 500 MG, UID/QD
     Route: 048
     Dates: start: 20110302
  6. VALTREX [Concomitant]
     Indication: VIRAL INFECTION
     Dosage: 500 MG, BID
     Route: 065
     Dates: start: 20110302
  7. XANAX [Concomitant]
     Indication: ANXIETY
     Dosage: 0.5 MG TID, PRN
     Route: 048
     Dates: start: 20090101
  8. FLUCONAZOLE [Concomitant]
     Indication: FUNGAL INFECTION
     Dosage: 400 MG, UID/QD
     Route: 048
     Dates: start: 20110302
  9. DAPSONE [Concomitant]
     Indication: BACTERIAL INFECTION
     Dosage: 10 MG, DAILY M-F
     Route: 048
     Dates: start: 20110302
  10. MAGNESIUM [Concomitant]
     Indication: MEDICAL DIET
     Dosage: 266 MG, QID
     Route: 065
     Dates: start: 20110302
  11. POTASSIUM CHLORIDE [Concomitant]
     Indication: ELECTROLYTE SUBSTITUTION THERAPY
     Dosage: 20 MEQ, UNKNOWN/D
     Route: 065
     Dates: start: 20110302
  12. PROGRAF [Suspect]
     Indication: BONE MARROW TRANSPLANT
     Dosage: 2 MG AM AND 1 MG PM
     Route: 048
     Dates: start: 20110302
  13. FOLIC ACID [Concomitant]
     Indication: MEDICAL DIET
     Dosage: 2 MG, BID
     Route: 048
     Dates: start: 20110302
  14. COMPAZINE [Concomitant]
     Indication: NAUSEA
     Dosage: 10 MG, Q6 HOURS
     Route: 048
     Dates: start: 20090101
  15. DILAUDID [Concomitant]
     Indication: PAIN
     Dosage: 4 MG EVERY 2 HOURS, PRN
     Route: 065
     Dates: start: 20090101
  16. NEXIUM [Concomitant]
     Indication: DYSPEPSIA
     Dosage: 1 DF, UID/QD
     Route: 048
     Dates: start: 20090101
  17. COMPAZINE [Concomitant]
     Indication: VOMITING
  18. AMBIEN [Concomitant]
     Indication: SLEEP DISORDER
     Dosage: 10 MG DAILY, PRN
     Route: 065
     Dates: start: 20090101

REACTIONS (3)
  - OFF LABEL USE [None]
  - GRAFT VERSUS HOST DISEASE [None]
  - HOSPITALISATION [None]
